FAERS Safety Report 4741486-2 (Version None)
Quarter: 2005Q3

REPORT INFORMATION
  Report Type: 
  Country: None (occurrence: None)
  Receive Date: 20050808
  Receipt Date: 20050516
  Transmission Date: 20060218
  Serious: Yes (Hospitalization)
  Sender: FDA-Public Use
  Company Number: 2005FR-00198

PATIENT
  Age: 84 Year
  Sex: Male

DRUGS (1)
  1. ASPIRIN [Suspect]
     Indication: CARDIAC DISORDER
     Dosage: 150 MG
     Route: 048
     Dates: end: 20041118

REACTIONS (2)
  - GASTRIC ULCER [None]
  - GASTROINTESTINAL HAEMORRHAGE [None]
